FAERS Safety Report 25432991 (Version 1)
Quarter: 2025Q2

REPORT INFORMATION
  Report Type: Spontaneous
  Country: US (occurrence: None)
  Receive Date: 20250613
  Receipt Date: 20250613
  Transmission Date: 20250717
  Serious: No
  Sender: MDD OPERATIONS
  Company Number: US-MDD US Operations-MDD202406-002136

PATIENT
  Age: 65 Year
  Sex: Male

DRUGS (2)
  1. APOKYN [Suspect]
     Active Substance: APOMORPHINE HYDROCHLORIDE
     Indication: Product used for unknown indication
     Route: 058
  2. APOKYN [Suspect]
     Active Substance: APOMORPHINE HYDROCHLORIDE

REACTIONS (4)
  - Obsessive-compulsive disorder [Unknown]
  - Hallucination [Unknown]
  - Adverse event [Unknown]
  - Fall [Unknown]

NARRATIVE: CASE EVENT DATE: 20240613
